FAERS Safety Report 4371389-7 (Version None)
Quarter: 2004Q2

REPORT INFORMATION
  Report Type: 
  Country: None (occurrence: None)
  Receive Date: 20040601
  Receipt Date: 20040407
  Transmission Date: 20050107
  Serious: No
  Sender: FDA-Public Use
  Company Number: 701846

PATIENT
  Age: 41 Year
  Sex: Female
  Weight: 53.978 kg

DRUGS (1)
  1. AMEVIVE [Suspect]
     Indication: PSORIASIS
     Dosage: 15 MG QW IM
     Route: 030
     Dates: start: 20030901

REACTIONS (8)
  - AXILLARY PAIN [None]
  - CHILLS [None]
  - HEADACHE [None]
  - HOT FLUSH [None]
  - INJECTION SITE PAIN [None]
  - NAUSEA [None]
  - PAIN [None]
  - PARAESTHESIA [None]
